FAERS Safety Report 8581037 (Version 2)
Quarter: 2013Q1

REPORT INFORMATION
  Report Type: Spontaneous
  Country: CA (occurrence: CA)
  Receive Date: 20120525
  Receipt Date: 20130221
  Transmission Date: 20140127
  Serious: Yes (Other)
  Sender: FDA-Public Use
  Company Number: CA-GLAXOSMITHKLINE-A0977733A

PATIENT
  Age: 65 None
  Sex: Female
  Weight: 50 kg

DRUGS (7)
  1. ADVAIR [Suspect]
     Indication: CHRONIC OBSTRUCTIVE PULMONARY DISEASE
     Dosage: 1PUFF TWICE PER DAY
     Route: 055
     Dates: start: 2006
  2. HYDROCHLOROTHIAZIDE [Concomitant]
     Dosage: 12.5MG UNKNOWN
     Route: 065
  3. VITAMINS [Concomitant]
     Route: 065
  4. CALCIUM [Concomitant]
     Route: 065
  5. ESTRACE [Concomitant]
     Dosage: 1MG UNKNOWN
     Route: 065
  6. OLANZAPINE [Concomitant]
     Dosage: 1.25MG UNKNOWN
     Route: 065
  7. VENTOLIN [Concomitant]

REACTIONS (11)
  - Pneumonia [Recovered/Resolved]
  - Oropharyngeal pain [Recovered/Resolved]
  - Throat irritation [Recovered/Resolved]
  - Dysphagia [Recovered/Resolved]
  - Headache [Recovered/Resolved]
  - Somnolence [Recovered/Resolved]
  - Anxiety [Unknown]
  - Pulmonary congestion [Not Recovered/Not Resolved]
  - Cough [Not Recovered/Not Resolved]
  - Increased upper airway secretion [Not Recovered/Not Resolved]
  - Sputum retention [Unknown]
